FAERS Safety Report 4512310-8 (Version None)
Quarter: 2004Q4

REPORT INFORMATION
  Report Type: 
  Country: None (occurrence: None)
  Receive Date: 20041129
  Receipt Date: 20041109
  Transmission Date: 20050328
  Serious: Yes (Other)
  Sender: FDA-Public Use
  Company Number: ZA-GLAXOSMITHKLINE-B0356698A

PATIENT
  Age: 58 Year
  Sex: Female
  Weight: 70 kg

DRUGS (6)
  1. ZYBAN [Suspect]
     Indication: SMOKING CESSATION THERAPY
     Dosage: 150MG TWICE PER DAY
     Route: 048
     Dates: start: 20041017, end: 20041101
  2. AMITRIPTYLINE HCL [Concomitant]
     Dosage: 2MG PER DAY
     Route: 065
     Dates: start: 19980101
  3. ALLOPURINOL [Concomitant]
     Dosage: 100MG PER DAY
     Route: 065
     Dates: start: 19950101
  4. HRT [Concomitant]
     Route: 065
  5. SIMVASTATIN [Concomitant]
     Dosage: 10MG PER DAY
     Route: 065
     Dates: start: 19980101
  6. ENALAPRIL [Concomitant]
     Dosage: 10MG PER DAY
     Route: 065
     Dates: start: 19910101

REACTIONS (4)
  - CONVULSION [None]
  - GRAND MAL CONVULSION [None]
  - TONGUE BITING [None]
  - TONIC CLONIC MOVEMENTS [None]
